FAERS Safety Report 4288839-7 (Version None)
Quarter: 2004Q1

REPORT INFORMATION
  Report Type: 
  Country: None (occurrence: None)
  Receive Date: 20040209
  Receipt Date: 20031113
  Transmission Date: 20041129
  Serious: Yes (Other)
  Sender: FDA-Public Use
  Company Number: PHEH2003US10503

PATIENT
  Age: 45 Year
  Sex: Male

DRUGS (2)
  1. DIOVAN [Suspect]
     Indication: HYPERTENSION
     Dosage: 160 MG, QD
     Route: 048
     Dates: start: 20011101
  2. COUMADIN [Concomitant]
     Indication: ANGIOPATHY
     Dosage: 5 MG, QD
     Dates: start: 20011101

REACTIONS (5)
  - DIZZINESS [None]
  - HEADACHE [None]
  - LABYRINTHITIS [None]
  - VERTIGO [None]
  - VISUAL ACUITY REDUCED [None]
